FAERS Safety Report 4797611-0 (Version None)
Quarter: 2005Q4

REPORT INFORMATION
  Report Type: 
  Country: None (occurrence: None)
  Receive Date: 20051013
  Receipt Date: 20051003
  Transmission Date: 20060501
  Serious: Yes (Hospitalization, Disabling, Other)
  Sender: FDA-Public Use
  Company Number: US-MERCK-0510USA02507

PATIENT
  Age: 41 Year
  Sex: Male
  Weight: 76 kg

DRUGS (20)
  1. VIOXX [Suspect]
     Indication: PAIN
     Route: 048
     Dates: start: 20020102, end: 20021129
  2. METOPROLOL [Concomitant]
     Route: 065
  3. PLAVIX [Concomitant]
     Route: 065
  4. NITROQUICK [Concomitant]
     Route: 065
  5. ZOCOR [Concomitant]
     Route: 065
  6. WELLBUTRIN [Concomitant]
     Route: 065
  7. ZESTRIL [Concomitant]
     Route: 065
  8. TOPROL-XL [Concomitant]
     Route: 065
  9. NAPROXEN [Concomitant]
     Route: 065
  10. HYDROCODONE BITARTRATE [Concomitant]
     Route: 065
  11. AMITRIPTYLINE HYDROCHLORIDE [Concomitant]
     Route: 065
  12. CYCLOBENZAPRINE HYDROCHLORIDE [Concomitant]
     Route: 065
  13. DIAZEPAM [Concomitant]
     Route: 065
  14. SKELAXIN [Concomitant]
     Route: 065
  15. ACETAMINOPHEN AND PROPOXYPHENE NAPSYLATE [Concomitant]
     Route: 065
  16. FLUOXETINE [Concomitant]
     Route: 065
  17. LISINOPRIL [Concomitant]
     Route: 065
  18. ASPIRIN [Concomitant]
     Route: 065
  19. ASCORBIC ACID [Concomitant]
     Route: 065
  20. VITAMIN E [Concomitant]
     Route: 065

REACTIONS (5)
  - BACK PAIN [None]
  - CARDIAC DISORDER [None]
  - CHEST PAIN [None]
  - DEPRESSION [None]
  - MYOCARDIAL INFARCTION [None]
